FAERS Safety Report 19715768 (Version 4)
Quarter: 2021Q4

REPORT INFORMATION
  Report Type: Report from Study
  Country: US (occurrence: US)
  Receive Date: 20210818
  Receipt Date: 20211009
  Transmission Date: 20220303
  Serious: Yes (Hospitalization)
  Sender: FDA-Public Use
  Company Number: US-NOVARTISPH-NVSC2021US181898

PATIENT
  Age: 94 Year
  Sex: Male

DRUGS (1)
  1. ENTRESTO [Suspect]
     Active Substance: SACUBITRIL\VALSARTAN
     Indication: Cardiac failure
     Dosage: 1 DF, BID ( 24/26 MG)
     Route: 048
     Dates: start: 20210712

REACTIONS (7)
  - Cellulitis [Recovering/Resolving]
  - Dyspnoea [Unknown]
  - Weight decreased [Unknown]
  - Scratch [Unknown]
  - Peripheral swelling [Unknown]
  - Product lot number issue [Unknown]
  - Drug ineffective [Unknown]

NARRATIVE: CASE EVENT DATE: 20210801
